FAERS Safety Report 15995543 (Version 38)
Quarter: 2024Q4

REPORT INFORMATION
  Report Type: Report from Study
  Country: CA (occurrence: CA)
  Receive Date: 20190222
  Receipt Date: 20241218
  Transmission Date: 20250115
  Serious: Yes (Hospitalization, Other)
  Sender: NOVARTIS
  Company Number: PHHY2017CA111935

PATIENT
  Age: 50 Year
  Sex: Female
  Weight: 130 kg

DRUGS (12)
  1. SANDOSTATIN LAR DEPOT [Suspect]
     Active Substance: OCTREOTIDE ACETATE
     Indication: Carcinoid tumour
     Dosage: 40 MG, Q3W
     Route: 030
     Dates: start: 20170629
  2. SANDOSTATIN LAR DEPOT [Suspect]
     Active Substance: OCTREOTIDE ACETATE
     Dosage: 40 MG
     Route: 030
  3. SANDOSTATIN LAR DEPOT [Suspect]
     Active Substance: OCTREOTIDE ACETATE
     Dosage: 40 MG, Q3W
     Route: 030
     Dates: start: 20200915
  4. SANDOSTATIN LAR DEPOT [Suspect]
     Active Substance: OCTREOTIDE ACETATE
     Dosage: 40 MG, Q3W
     Route: 030
     Dates: start: 20220329
  5. SANDOSTATIN LAR DEPOT [Suspect]
     Active Substance: OCTREOTIDE ACETATE
     Dosage: 40 MG, Q3W
     Route: 030
     Dates: start: 202304
  6. SANDOSTATIN LAR DEPOT [Suspect]
     Active Substance: OCTREOTIDE ACETATE
     Dosage: 40 MG, Q3W (3 WEEKS)
     Route: 030
     Dates: start: 20240626
  7. SANDOSTATIN LAR DEPOT [Suspect]
     Active Substance: OCTREOTIDE ACETATE
     Dosage: UNK
     Route: 065
     Dates: start: 20241009
  8. SANDOSTATIN LAR DEPOT [Suspect]
     Active Substance: OCTREOTIDE ACETATE
     Dosage: UNK
     Route: 065
     Dates: start: 20241031
  9. MORPHINE [Suspect]
     Active Substance: MORPHINE
     Indication: Product used for unknown indication
     Dosage: UNK
     Route: 065
  10. LORAZEPAM [Concomitant]
     Active Substance: LORAZEPAM
     Indication: Product used for unknown indication
     Dosage: UNK (ON SATURDAY NIGHT)
     Route: 065
  11. TELMISARTAN [Concomitant]
     Active Substance: TELMISARTAN
     Indication: Hypertension
     Dosage: 80 MG
     Route: 048
     Dates: start: 2018
  12. SOMATOSTATIN [Concomitant]
     Active Substance: SOMATOSTATIN
     Indication: Product used for unknown indication
     Dosage: UNK
     Route: 065

REACTIONS (69)
  - Acne [Not Recovered/Not Resolved]
  - Abdominal discomfort [Not Recovered/Not Resolved]
  - Asthenia [Not Recovered/Not Resolved]
  - Administration site discharge [Unknown]
  - Loss of consciousness [Not Recovered/Not Resolved]
  - Necrotising fasciitis [Not Recovered/Not Resolved]
  - Iron deficiency anaemia [Recovered/Resolved]
  - Red blood cell count decreased [Unknown]
  - Gait disturbance [Not Recovered/Not Resolved]
  - Hypotonia [Not Recovered/Not Resolved]
  - Oxygen saturation decreased [Not Recovered/Not Resolved]
  - Iron deficiency anaemia [Not Recovered/Not Resolved]
  - Blood pressure increased [Not Recovered/Not Resolved]
  - Diabetes mellitus [Not Recovered/Not Resolved]
  - Carcinoid tumour [Not Recovered/Not Resolved]
  - Tumour marker increased [Not Recovered/Not Resolved]
  - Weight decreased [Not Recovered/Not Resolved]
  - Injection site cyst [Not Recovered/Not Resolved]
  - Subcutaneous abscess [Unknown]
  - Malignant neoplasm progression [Unknown]
  - Buttock injury [Unknown]
  - Influenza [Recovering/Resolving]
  - Cough [Not Recovered/Not Resolved]
  - Productive cough [Unknown]
  - Pyrexia [Not Recovered/Not Resolved]
  - Blood pressure systolic increased [Unknown]
  - Blood pressure diastolic decreased [Unknown]
  - Body temperature increased [Unknown]
  - Nasopharyngitis [Recovering/Resolving]
  - Anxiety [Unknown]
  - Wound [Unknown]
  - Feeling hot [Unknown]
  - Weight increased [Unknown]
  - Dyspnoea [Unknown]
  - Hidradenitis [Unknown]
  - Pain [Unknown]
  - Hot flush [Unknown]
  - Breast cyst [Unknown]
  - Nausea [Unknown]
  - Fatigue [Unknown]
  - Dizziness [Unknown]
  - Vomiting [Unknown]
  - Throat irritation [Unknown]
  - Myalgia [Unknown]
  - Stress [Unknown]
  - Night sweats [Unknown]
  - Eschar [Unknown]
  - Skin discolouration [Unknown]
  - Rhinorrhoea [Unknown]
  - Diarrhoea [Recovered/Resolved]
  - Diarrhoea [Unknown]
  - Hypersomnia [Unknown]
  - Pruritus [Unknown]
  - Renal function test abnormal [Unknown]
  - Malaise [Unknown]
  - Infected cyst [Unknown]
  - Wound secretion [Unknown]
  - Drug intolerance [Unknown]
  - Administration site abscess [Unknown]
  - Administration site induration [Unknown]
  - Administration site odour [Unknown]
  - Administration site haemorrhage [Unknown]
  - Injection site infection [Recovering/Resolving]
  - Injection site paraesthesia [Unknown]
  - Injection site pain [Unknown]
  - Drug ineffective [Unknown]
  - Inappropriate schedule of product administration [Unknown]
  - Chills [Unknown]
  - Haemoglobin abnormal [Unknown]

NARRATIVE: CASE EVENT DATE: 20180208
